FAERS Safety Report 15094675 (Version 1)
Quarter: 2018Q3

REPORT INFORMATION
  Report Type: Spontaneous
  Country: US (occurrence: US)
  Receive Date: 20180701
  Receipt Date: 20180701
  Transmission Date: 20181010
  Serious: No
  Sender: FDA-Public Use
  Company Number: US-IPSEN BIOPHARMACEUTICALS, INC.-2018-07159

PATIENT
  Age: 39 Year
  Sex: Female

DRUGS (2)
  1. RESTYLANE [Suspect]
     Active Substance: HYALURONIC ACID
     Indication: SKIN COSMETIC PROCEDURE
     Dosage: 1 ML
     Dates: start: 20180313, end: 20180313
  2. DYSPORT [Suspect]
     Active Substance: ABOBOTULINUMTOXINA
     Indication: SKIN COSMETIC PROCEDURE
     Dosage: NOT REPORTED
     Route: 065

REACTIONS (2)
  - Lip swelling [Recovered/Resolved]
  - Drug ineffective [Unknown]

NARRATIVE: CASE EVENT DATE: 201803
